FAERS Safety Report 5945865-7 (Version None)
Quarter: 2008Q4

REPORT INFORMATION
  Report Type: 
  Country: None (occurrence: None)
  Receive Date: 20081106
  Receipt Date: 20081024
  Transmission Date: 20090506
  Serious: Yes (Hospitalization)
  Sender: FDA-Public Use
  Company Number: 2008SP002551

PATIENT
  Age: 7 Year
  Sex: Male

DRUGS (5)
  1. CICLESONDIE HFA (CICLESONIDE HFA) [Suspect]
     Indication: ASTHMA
     Dosage: QD;INHALATION
     Dates: start: 20080929
  2. ZADITOR [Concomitant]
  3. PRANLUKAST [Concomitant]
  4. FLOMOX [Concomitant]
  5. MUCODYNE [Concomitant]

REACTIONS (6)
  - ABNORMAL SENSATION IN EYE [None]
  - CONDITION AGGRAVATED [None]
  - EYE PAIN [None]
  - OTORRHOEA [None]
  - PARANASAL SINUS MUCOSAL HYPERTROPHY [None]
  - PERIORBITAL CELLULITIS [None]
